FAERS Safety Report 24754203 (Version 1)
Quarter: 2024Q4

REPORT INFORMATION
  Report Type: Spontaneous
  Country: US (occurrence: US)
  Receive Date: 20241219
  Receipt Date: 20241219
  Transmission Date: 20250114
  Serious: Yes (Other)
  Sender: INCYTE
  Company Number: US-EVENT-000928

PATIENT

DRUGS (1)
  1. MONJUVI [Suspect]
     Active Substance: TAFASITAMAB-CXIX
     Dosage: UNK
     Route: 065
     Dates: start: 202411

REACTIONS (4)
  - Activated partial thromboplastin time prolonged [Not Recovered/Not Resolved]
  - Fibrin D dimer increased [Not Recovered/Not Resolved]
  - Blood fibrinogen increased [Not Recovered/Not Resolved]
  - Rash [Not Recovered/Not Resolved]
